FAERS Safety Report 19639299 (Version 3)
Quarter: 2021Q4

REPORT INFORMATION
  Report Type: Spontaneous
  Country: FR (occurrence: FR)
  Receive Date: 20210729
  Receipt Date: 20211026
  Transmission Date: 20220304
  Serious: Yes (Death, Hospitalization)
  Sender: FDA-Public Use
  Company Number: FR-PFIZER INC-2021849348

PATIENT

DRUGS (1)
  1. VYNDAQEL [Suspect]
     Active Substance: TAFAMIDIS MEGLUMINE
     Dosage: 61 MG

REACTIONS (3)
  - Diarrhoea [Fatal]
  - Dehydration [Fatal]
  - Acute kidney injury [Fatal]
